FAERS Safety Report 6978110-4 (Version None)
Quarter: 2010Q3

REPORT INFORMATION
  Report Type: 
  Country: None (occurrence: None)
  Receive Date: 20100913
  Receipt Date: 20100901
  Transmission Date: 20110219
  Serious: Yes (Other)
  Sender: FDA-Public Use
  Company Number: JP-JNJFOC-20100203811

PATIENT
  Sex: Male
  Weight: 57 kg

DRUGS (20)
  1. REMICADE [Suspect]
     Indication: RHEUMATOID ARTHRITIS
     Route: 042
  2. REMICADE [Suspect]
     Route: 042
  3. REMICADE [Suspect]
     Route: 042
  4. REMICADE [Suspect]
     Route: 042
  5. REMICADE [Suspect]
     Route: 042
  6. REMICADE [Suspect]
     Route: 042
  7. REMICADE [Suspect]
     Route: 042
  8. REMICADE [Suspect]
     Route: 042
  9. RHEUMATREX [Suspect]
     Indication: RHEUMATOID ARTHRITIS
     Route: 048
  10. RHEUMATREX [Suspect]
     Route: 048
  11. RHEUMATREX [Suspect]
     Route: 048
  12. RHEUMATREX [Suspect]
     Route: 048
  13. RHEUMATREX [Suspect]
     Route: 048
  14. PREDNISOLONE [Concomitant]
     Indication: RHEUMATOID ARTHRITIS
     Route: 048
  15. SOLETON [Concomitant]
     Indication: RHEUMATOID ARTHRITIS
     Route: 048
  16. OMEPRAZOLE [Concomitant]
     Route: 048
  17. VOGLIBOSE [Concomitant]
     Indication: DIABETES MELLITUS
     Route: 048
  18. GLIMICRON [Concomitant]
     Route: 048
  19. AMLODIPINE [Concomitant]
     Indication: HYPERTENSION
     Route: 048
  20. NAFTOPIDIL [Concomitant]
     Indication: BENIGN PROSTATIC HYPERPLASIA
     Route: 048

REACTIONS (1)
  - B-CELL LYMPHOMA [None]
